FAERS Safety Report 18627517 (Version 1)
Quarter: 2020Q4

REPORT INFORMATION
  Report Type: Spontaneous
  Country: US (occurrence: US)
  Receive Date: 20201216
  Receipt Date: 20201216
  Transmission Date: 20210114
  Serious: Yes (Hospitalization)
  Sender: FDA-Public Use
  Company Number: None

PATIENT
  Age: 75 Year
  Sex: Male
  Weight: 49.9 kg

DRUGS (1)
  1. METTFORMIN (METFORMIN HCL 500MG TAB) [Suspect]
     Active Substance: METFORMIN HYDROCHLORIDE
     Indication: DIABETES MELLITUS
     Route: 048
     Dates: start: 20181128

REACTIONS (7)
  - Urinary tract infection [None]
  - Failure to thrive [None]
  - Dehydration [None]
  - Diarrhoea [None]
  - Hyperglycaemia [None]
  - Lactic acidosis [None]
  - Renal failure [None]

NARRATIVE: CASE EVENT DATE: 20200716
